FAERS Safety Report 4577087-9 (Version None)
Quarter: 2005Q1

REPORT INFORMATION
  Report Type: 
  Country: None (occurrence: None)
  Receive Date: 20050208
  Receipt Date: 20050201
  Transmission Date: 20050727
  Serious: Yes (Death)
  Sender: FDA-Public Use
  Company Number: 05-01-0147

PATIENT
  Age: 28 Year
  Sex: Female

DRUGS (3)
  1. CLOZAPINE [Suspect]
     Indication: BIPOLAR DISORDER
     Dosage: 100-325MG QD ORAL
     Route: 048
     Dates: start: 20040801, end: 20041201
  2. ATROPINE [Suspect]
     Dosage: OPHTHALMIC
     Route: 047
  3. ETHANOL [Suspect]

REACTIONS (3)
  - ALCOHOL USE [None]
  - BRAIN OEDEMA [None]
  - SUICIDE ATTEMPT [None]
